FAERS Safety Report 5315497-2 (Version None)
Quarter: 2007Q2

REPORT INFORMATION
  Report Type: 
  Country: None (occurrence: None)
  Receive Date: 20070503
  Receipt Date: 20070426
  Transmission Date: 20071010
  Serious: Yes (Other)
  Sender: FDA-Public Use
  Company Number: HQWYE863526APR07

PATIENT
  Sex: Female
  Weight: 43 kg

DRUGS (1)
  1. TRIQUILAR-21 [Suspect]
     Indication: ORAL CONTRACEPTION
     Route: 048
     Dates: start: 20010101

REACTIONS (6)
  - BREAST NEOPLASM [None]
  - DIZZINESS [None]
  - HEADACHE [None]
  - LOSS OF LIBIDO [None]
  - MALAISE [None]
  - THYROID NEOPLASM [None]
